FAERS Safety Report 4511282-X (Version None)
Quarter: 2004Q4

REPORT INFORMATION
  Report Type: 
  Country: None (occurrence: None)
  Receive Date: 20041123
  Receipt Date: 20041123
  Transmission Date: 20050328
  Serious: Yes (Life-Threatening, Hospitalization)
  Sender: FDA-Public Use
  Company Number: None

PATIENT
  Age: 75 Year
  Sex: Male
  Weight: 68 kg

DRUGS (7)
  1. INDOMETHACIN [Suspect]
  2. ALLOPURINOL [Concomitant]
  3. DICLOXACILLIN NA [Concomitant]
  4. INDOMETHACIN [Concomitant]
  5. HYDROXYUREA [Concomitant]
  6. MULTI-VITAMIN [Concomitant]
  7. INTERFERON ALFA-2B [Concomitant]

REACTIONS (1)
  - ANAEMIA [None]
